FAERS Safety Report 22001234 (Version 2)
Quarter: 2023Q4

REPORT INFORMATION
  Report Type: Report from Study
  Country: US (occurrence: US)
  Receive Date: 20230216
  Receipt Date: 20231025
  Transmission Date: 20240110
  Serious: No
  Sender: FDA-Public Use
  Company Number: US-IDORSIA-003471-2023-US

PATIENT
  Age: 61 Year
  Sex: Female

DRUGS (1)
  1. QUVIVIQ [Suspect]
     Active Substance: DARIDOREXANT
     Indication: Insomnia
     Dosage: 50 MG, QD
     Route: 048

REACTIONS (3)
  - Vertigo [Unknown]
  - Middle ear effusion [Unknown]
  - Dizziness [Unknown]

NARRATIVE: CASE EVENT DATE: 20230203
